FAERS Safety Report 9815486 (Version 2)
Quarter: 2014Q1

REPORT INFORMATION
  Report Type: Spontaneous
  Country: US (occurrence: US)
  Receive Date: 20140114
  Receipt Date: 20140212
  Transmission Date: 20141002
  Serious: No
  Sender: FDA-Public Use
  Company Number: US-PFIZER INC-2014008461

PATIENT
  Age: 72 Year
  Sex: Female

DRUGS (2)
  1. INLYTA [Suspect]
     Indication: RENAL CANCER
     Dosage: 5 MG, 2X/DAY
     Dates: start: 20131216
  2. INLYTA [Suspect]
     Dosage: 7 MG, 2X/DAY
     Dates: start: 20131213

REACTIONS (3)
  - Fatigue [Unknown]
  - Dysphonia [Unknown]
  - Constipation [Unknown]
